FAERS Safety Report 9896247 (Version 1)
Quarter: 2014Q1

REPORT INFORMATION
  Report Type: Spontaneous
  Country: US (occurrence: US)
  Receive Date: 20140213
  Receipt Date: 20140213
  Transmission Date: 20141002
  Serious: No
  Sender: FDA-Public Use
  Company Number: US-BRISTOL-MYERS SQUIBB COMPANY-17432055

PATIENT
  Age: 58 Year
  Sex: Female
  Weight: 50.79 kg

DRUGS (3)
  1. ORENCIA [Suspect]
     Indication: RHEUMATOID ARTHRITIS
     Dates: start: 2012, end: 201301
  2. SYMBICORT [Concomitant]
  3. ZOLOFT [Concomitant]

REACTIONS (1)
  - Arthropathy [Unknown]
